FAERS Safety Report 23094157 (Version 1)
Quarter: 2023Q4

REPORT INFORMATION
  Report Type: Report from Study
  Country: US (occurrence: US)
  Receive Date: 20231023
  Receipt Date: 20231023
  Transmission Date: 20240110
  Serious: Yes (Other)
  Sender: FDA-Public Use
  Company Number: US-ABBVIE-5457186

PATIENT
  Age: 10 Year
  Sex: Female

DRUGS (3)
  1. HUMIRA [Suspect]
     Active Substance: ADALIMUMAB
     Indication: Product used for unknown indication
     Dosage: CITRATE FREE SYRINGE
     Route: 058
     Dates: start: 20220102
  2. HUMIRA [Suspect]
     Active Substance: ADALIMUMAB
     Dosage: CITRATE FREE SYRINGE
     Route: 058
  3. METHOTREXATE [Suspect]
     Active Substance: METHOTREXATE
     Indication: Product used for unknown indication
     Route: 065

REACTIONS (7)
  - Cataract [Unknown]
  - Posterior capsule opacification [Unknown]
  - Condition aggravated [Not Recovered/Not Resolved]
  - Eye inflammation [Unknown]
  - Fatigue [Unknown]
  - Weight increased [Unknown]
  - Posterior capsule opacification [Unknown]

NARRATIVE: CASE EVENT DATE: 20220301
